FAERS Safety Report 5868083-X (Version None)
Quarter: 2008Q3

REPORT INFORMATION
  Report Type: 
  Country: None (occurrence: None)
  Receive Date: 20080902
  Receipt Date: 20080327
  Transmission Date: 20090109
  Serious: No
  Sender: FDA-Public Use
  Company Number: US-ABBOTT-08P-163-0444808-00

PATIENT
  Sex: Female
  Weight: 59.02 kg

DRUGS (3)
  1. DEPAKOTE ER [Suspect]
     Indication: BIPOLAR DISORDER
     Route: 048
     Dates: start: 20070301, end: 20070501
  2. DEPAKOTE [Suspect]
     Indication: BIPOLAR DISORDER
     Dosage: 125MG IN AM 250 MG AT BEDTIME
     Route: 048
     Dates: start: 20070901
  3. CLONAZEPAM [Concomitant]
     Indication: SLEEP DISORDER

REACTIONS (6)
  - ACNE [None]
  - ASTHENOPIA [None]
  - DEPRESSION [None]
  - DRY EYE [None]
  - FATIGUE [None]
  - MEDICATION RESIDUE [None]
